FAERS Safety Report 22021898 (Version 1)
Quarter: 2023Q1

REPORT INFORMATION
  Report Type: Spontaneous
  Country: US (occurrence: None)
  Receive Date: 20230220
  Receipt Date: 20230220
  Transmission Date: 20230418
  Serious: Yes (Hospitalization)
  Sender: FDA-Public Use
  Company Number: None

PATIENT
  Age: 69 Year
  Sex: Male

DRUGS (1)
  1. AVONEX PEN [Suspect]
     Active Substance: INTERFERON BETA-1A
     Indication: Multiple sclerosis
     Dosage: 30 MCG EVERY 7 DAYS INTRAMUSCULAR
     Route: 030
     Dates: start: 20200121

REACTIONS (2)
  - Chest pain [None]
  - Hypertension [None]

NARRATIVE: CASE EVENT DATE: 20230213
